FAERS Safety Report 24913047 (Version 1)
Quarter: 2025Q1

REPORT INFORMATION
  Report Type: Report from Study
  Country: GB (occurrence: GB)
  Receive Date: 20250201
  Receipt Date: 20250201
  Transmission Date: 20250409
  Serious: Yes (Other)
  Sender: ABBVIE
  Company Number: GB-ABBVIE-6101880

PATIENT
  Age: 22 Year
  Sex: Female

DRUGS (1)
  1. SKYRIZI [Suspect]
     Active Substance: RISANKIZUMAB-RZAA
     Indication: Crohn^s disease
     Dosage: 360MG/2.4ML
     Route: 058
     Dates: start: 20241002

REACTIONS (3)
  - Stoma creation [Unknown]
  - Crohn^s disease [Unknown]
  - Therapeutic response shortened [Not Recovered/Not Resolved]
